FAERS Safety Report 21726888 (Version 1)
Quarter: 2022Q4

REPORT INFORMATION
  Report Type: Spontaneous
  Country: NL (occurrence: NL)
  Receive Date: 20221214
  Receipt Date: 20221214
  Transmission Date: 20230112
  Serious: Yes (Death, Congenital Anomaly, Other)
  Sender: FDA-Public Use
  Company Number: None

PATIENT
  Sex: Male

DRUGS (5)
  1. CARBIDOPA\LEVODOPA [Suspect]
     Active Substance: CARBIDOPA\LEVODOPA
     Indication: Parkinson^s disease
     Dosage: 8 TIMES PER DAY 250 MG (MEDICATION PRESCRIBED BY PHYSICIAN: YES)
     Route: 064
  2. CARBIDOPA\LEVODOPA [Suspect]
     Active Substance: CARBIDOPA\LEVODOPA
     Dosage: 125MG 1 PER DAY (MEDICATION PRESCRIBED BY PHYSICIAN: YES)
     Route: 064
     Dates: start: 2015
  3. ACETAMINOPHEN [Concomitant]
     Active Substance: ACETAMINOPHEN
     Dosage: 500 MG
  4. LEVOTHYROXINE [Concomitant]
     Active Substance: LEVOTHYROXINE
     Dosage: CAPSULE, 112 MCG (MICROGRAM)
  5. FOLIC ACID [Concomitant]
     Active Substance: FOLIC ACID
     Dosage: TABLET, 5 MG (MILLIGRAM)

REACTIONS (3)
  - Spina bifida [Fatal]
  - Maternal exposure during pregnancy [Unknown]
  - Abortion spontaneous [Unknown]
